FAERS Safety Report 5046318-3 (Version None)
Quarter: 2006Q3

REPORT INFORMATION
  Report Type: 
  Country: None (occurrence: None)
  Receive Date: 20060710
  Receipt Date: 20060629
  Transmission Date: 20061208
  Serious: Yes (Hospitalization)
  Sender: FDA-Public Use
  Company Number: US-MERCK-0606USA05810

PATIENT
  Age: 63 Year
  Sex: Female

DRUGS (2)
  1. VYTORIN [Suspect]
     Indication: BLOOD CHOLESTEROL INCREASED
     Route: 048
  2. ACIPHEX [Concomitant]
     Route: 065

REACTIONS (3)
  - ANGIONEUROTIC OEDEMA [None]
  - ANTINUCLEAR ANTIBODY POSITIVE [None]
  - SKIN REACTION [None]
